FAERS Safety Report 4749135-4 (Version None)
Quarter: 2005Q3

REPORT INFORMATION
  Report Type: 
  Country: None (occurrence: None)
  Receive Date: 20050819
  Receipt Date: 20030519
  Transmission Date: 20060218
  Serious: Yes (Life-Threatening, Hospitalization)
  Sender: FDA-Public Use
  Company Number: PHBS2003JP05265

PATIENT
  Age: 35 Year
  Sex: Female

DRUGS (4)
  1. MELLARIL [Suspect]
     Indication: SCHIZOPHRENIA
     Dosage: 200 MG/D
     Route: 048
  2. MELLARIL [Suspect]
     Dosage: 20 TABLETS, ONCE/SINGLE
     Route: 048
     Dates: start: 20030310
  3. ZYPREXA [Suspect]
     Indication: SCHIZOPHRENIA
     Dosage: 80 MG/D
     Route: 048
  4. ZYPREXA [Suspect]
     Dosage: 16 TABLETS, ONCE/SINGLE
     Route: 048
     Dates: start: 20030310

REACTIONS (8)
  - DEPRESSED LEVEL OF CONSCIOUSNESS [None]
  - DRUG INTERACTION [None]
  - DRUG LEVEL INCREASED [None]
  - ELECTROCARDIOGRAM QT PROLONGED [None]
  - OVERDOSE [None]
  - SUICIDE ATTEMPT [None]
  - VENTRICULAR FIBRILLATION [None]
  - VENTRICULAR TACHYCARDIA [None]
